FAERS Safety Report 10219549 (Version 2)
Quarter: 2014Q2

REPORT INFORMATION
  Report Type: Report from Study
  Country: CA (occurrence: CA)
  Receive Date: 20140605
  Receipt Date: 20140612
  Transmission Date: 20141212
  Serious: Yes (Hospitalization)
  Sender: FDA-Public Use
  Company Number: CA-BRISTOL-MYERS SQUIBB COMPANY-20869434

PATIENT
  Age: 54 Year
  Sex: Female

DRUGS (7)
  1. ORENCIA [Suspect]
     Indication: RHEUMATOID ARTHRITIS
     Dosage: LAST DOSE : 29APR2014
     Route: 042
     Dates: start: 20130128
  2. TRACLEER [Concomitant]
  3. CIALIS [Concomitant]
  4. PREDNISONE [Concomitant]
  5. OXYCODONE [Concomitant]
  6. ZOPICLONE [Concomitant]
  7. OLANZAPINE [Concomitant]

REACTIONS (2)
  - Granulomatosis with polyangiitis [Unknown]
  - Bipolar disorder [Unknown]
